FAERS Safety Report 8143869-X (Version None)
Quarter: 2012Q1

REPORT INFORMATION
  Report Type: 
  Country: None (occurrence: None)
  Receive Date: 20120217
  Receipt Date: 20120210
  Transmission Date: 20120608
  Serious: Yes (Other)
  Sender: FDA-Public Use
  Company Number: US-BAYER-2012-012680

PATIENT
  Age: 73 Year
  Sex: Female
  Weight: 86.168 kg

DRUGS (4)
  1. TOPROL-XL [Concomitant]
  2. ACETAMINOPHEN [Concomitant]
     Dosage: UNK
     Dates: start: 20120206, end: 20120206
  3. ALKA-SELTZER PLUS COLD SPARKLING ORIGINAL [Suspect]
     Dosage: UNK
     Route: 048
     Dates: end: 20120207
  4. AMBIEN [Concomitant]

REACTIONS (1)
  - RECTAL HAEMORRHAGE [None]
